FAERS Safety Report 9787258 (Version 1)
Quarter: 2013Q4

REPORT INFORMATION
  Report Type: Spontaneous
  Country: MX (occurrence: MX)
  Receive Date: 20131230
  Receipt Date: 20131230
  Transmission Date: 20140711
  Serious: Yes (Other)
  Sender: FDA-Public Use
  Company Number: MX-ROCHE-1323958

PATIENT
  Age: 44 Year
  Sex: Female
  Weight: 45 kg

DRUGS (6)
  1. TRASTUZUMAB EMTANSINE [Suspect]
     Indication: BREAST CANCER
     Dosage: DOSAGE REGIMEN (3 MG / KG)
     Route: 042
     Dates: start: 20131109, end: 20131109
  2. TRANSTEC [Concomitant]
     Indication: PAIN
     Route: 062
     Dates: start: 201311
  3. TEMGESIC [Concomitant]
     Indication: PAIN
     Dosage: FREQUENCY (AS REQUIRED).
     Route: 060
     Dates: start: 201311
  4. ACETAMINOPHEN [Concomitant]
     Indication: PAIN
     Route: 048
     Dates: start: 20130927
  5. GABAPENTIN [Concomitant]
     Indication: PAIN
     Route: 048
     Dates: start: 201311
  6. SENNOSIDES [Concomitant]
     Indication: CONSTIPATION
     Dosage: DOSE (1 OR 2 TABLETS DAILY)
     Route: 048
     Dates: start: 201311

REACTIONS (5)
  - Herpes zoster [Recovered/Resolved]
  - Oral candidiasis [Recovering/Resolving]
  - Disease progression [Not Recovered/Not Resolved]
  - Transaminases increased [Not Recovered/Not Resolved]
  - Anaemia [Not Recovered/Not Resolved]
